FAERS Safety Report 13082156 (Version 5)
Quarter: 2018Q3

REPORT INFORMATION
  Report Type: Spontaneous
  Country: US (occurrence: US)
  Receive Date: 20170103
  Receipt Date: 20180920
  Transmission Date: 20181010
  Serious: Yes (Hospitalization, Other)
  Sender: FDA-Public Use
  Company Number: US-BAYER-2016-243784

PATIENT
  Age: 56 Year
  Sex: Male
  Weight: 103 kg

DRUGS (24)
  1. CLONAZEPAM. [Concomitant]
     Active Substance: CLONAZEPAM
     Dosage: 0.5 MG, BID
     Dates: start: 20180709, end: 20180802
  2. BUPIVACAINE. [Concomitant]
     Active Substance: BUPIVACAINE
     Route: 037
  3. GABAPENTIN. [Concomitant]
     Active Substance: GABAPENTIN
     Dosage: 600 MG, QD
  4. MAGNESIUM OXIDE. [Concomitant]
     Active Substance: MAGNESIUM OXIDE
     Dosage: 400 MG, QD
     Route: 048
  5. CLONAZEPAM. [Concomitant]
     Active Substance: CLONAZEPAM
     Dosage: 0.5 MG, BID
  6. ATIVAN [Concomitant]
     Active Substance: LORAZEPAM
     Dosage: 1 MG, HS
     Route: 048
  7. PERCOCET [Concomitant]
     Active Substance: ACETAMINOPHEN\OXYCODONE HYDROCHLORIDE
     Indication: PAIN
     Dosage: 1 DF, PRN
     Route: 048
  8. METOPROLOL TARTRATE. [Concomitant]
     Active Substance: METOPROLOL TARTRATE
     Dosage: 25 MG, BID
     Route: 048
  9. EPINEPHRINE. [Concomitant]
     Active Substance: EPINEPHRINE
     Indication: ANAPHYLACTIC REACTION
     Dosage: 0.3 ML, PRN
     Route: 030
  10. KEPPRA [Concomitant]
     Active Substance: LEVETIRACETAM
     Dosage: UNK
     Dates: start: 20161119
  11. FENTANYL CITRATE. [Concomitant]
     Active Substance: FENTANYL CITRATE
     Dosage: 30 MCG/ML, UNK
     Route: 037
  12. VITAMIN D [Concomitant]
     Active Substance: CHOLECALCIFEROL
     Dosage: 1 DF, QD
     Route: 048
     Dates: start: 20170125, end: 20170126
  13. MEMANTINE. [Concomitant]
     Active Substance: MEMANTINE
     Dosage: 5 MG, QD
  14. ANTIVERT [Concomitant]
     Active Substance: MECLIZINE HYDROCHLORIDE
     Dosage: 25 MG, QD
     Route: 048
     Dates: start: 20170125, end: 20170126
  15. PAMELOR [Concomitant]
     Active Substance: NORTRIPTYLINE HYDROCHLORIDE
     Dosage: 50 MG, HS
     Route: 048
  16. COZAAR [Concomitant]
     Active Substance: LOSARTAN POTASSIUM
     Dosage: 25 MG, QD
     Route: 048
  17. MANNITOL. [Concomitant]
     Active Substance: MANNITOL
     Dosage: UNK
     Route: 042
     Dates: start: 20161119
  18. FENTANYL CITRATE. [Concomitant]
     Active Substance: FENTANYL CITRATE
     Dosage: 10 MCG/ML, UNK
     Route: 037
  19. PRINIVIL [Concomitant]
     Active Substance: LISINOPRIL
     Dosage: 5 MG, QD
     Route: 048
  20. PAMELOR [Concomitant]
     Active Substance: NORTRIPTYLINE HYDROCHLORIDE
     Dosage: 25 MG, HS
     Route: 048
     Dates: start: 20170125, end: 20170126
  21. VITAMIN B12 [Concomitant]
     Active Substance: CYANOCOBALAMIN
     Dosage: 1000 ?G, QD
     Route: 048
  22. MAGNEVIST [Suspect]
     Active Substance: GADOPENTETATE DIMEGLUMINE
     Indication: IMAGING PROCEDURE
     Dosage: UNK UNK, ONCE
     Route: 037
     Dates: start: 20161119, end: 20161119
  23. MAGNEVIST [Suspect]
     Active Substance: GADOPENTETATE DIMEGLUMINE
     Indication: SPINAL MYELOGRAM
  24. PREVACID [Concomitant]
     Active Substance: LANSOPRAZOLE
     Dosage: 30 MG, QD
     Route: 048

REACTIONS (30)
  - Brain oedema [Recovering/Resolving]
  - Encephalopathy [None]
  - Gait disturbance [None]
  - Visual impairment [None]
  - Dizziness [None]
  - Vision blurred [None]
  - Balance disorder [None]
  - Myalgia [None]
  - Product administered at inappropriate site [None]
  - Tinnitus [Not Recovered/Not Resolved]
  - Stress [None]
  - Tinnitus [None]
  - Vertigo [None]
  - Encephalitis toxic [None]
  - Amnesia [None]
  - Concussion [None]
  - Repetitive speech [Recovering/Resolving]
  - Nuclear magnetic resonance imaging abnormal [Recovering/Resolving]
  - Contrast media allergy [Recovering/Resolving]
  - Head discomfort [None]
  - Contrast media deposition [None]
  - Meningitis chemical [None]
  - Pruritus [None]
  - Feeling abnormal [None]
  - Disturbance in attention [None]
  - Fatigue [None]
  - Mental disorder [Recovering/Resolving]
  - Iodine allergy [Recovering/Resolving]
  - Diplopia [None]
  - Disorientation [None]

NARRATIVE: CASE EVENT DATE: 20161119
